FAERS Safety Report 9376210 (Version 2)
Quarter: 2014Q1

REPORT INFORMATION
  Report Type: Spontaneous
  Country: US (occurrence: US)
  Receive Date: 20130701
  Receipt Date: 20140207
  Transmission Date: 20141002
  Serious: Yes (Other)
  Sender: FDA-Public Use
  Company Number: US-JNJFOC-20130613416

PATIENT
  Sex: 0

DRUGS (3)
  1. HALOPERIDOL [Suspect]
     Indication: SCHIZOPHRENIA
     Route: 065
  2. HALOPERIDOL [Suspect]
     Indication: SCHIZOPHRENIA
     Dosage: 10-30 MG/DAY
     Route: 065
  3. BENZTROPINE [Suspect]
     Indication: PRODUCT USED FOR UNKNOWN INDICATION
     Route: 065

REACTIONS (1)
  - Metabolic syndrome [Unknown]
